FAERS Safety Report 21365492 (Version 1)
Quarter: 2022Q3

REPORT INFORMATION
  Report Type: Spontaneous
  Country: US (occurrence: US)
  Receive Date: 20220922
  Receipt Date: 20220922
  Transmission Date: 20221027
  Serious: Yes (Death, Other)
  Sender: FDA-Public Use
  Company Number: US-AMGEN-USASP2022159447

PATIENT

DRUGS (2)
  1. BEVACIZUMAB [Suspect]
     Active Substance: BEVACIZUMAB
     Indication: Hepatocellular carcinoma
     Dosage: UNK
     Route: 065
  2. ATEZOLIZUMAB [Suspect]
     Active Substance: ATEZOLIZUMAB
     Indication: Hepatocellular carcinoma
     Dosage: UNK
     Route: 065

REACTIONS (9)
  - Death [Fatal]
  - Hepatocellular carcinoma [Unknown]
  - Tumour thrombosis [Unknown]
  - Portal vein cavernous transformation [Unknown]
  - Ascites [Unknown]
  - Drug intolerance [Unknown]
  - Off label use [Unknown]
  - Pleural effusion [Unknown]
  - Therapy partial responder [Unknown]
